FAERS Safety Report 5241940-3 (Version None)
Quarter: 2007Q1

REPORT INFORMATION
  Report Type: 
  Country: None (occurrence: None)
  Receive Date: 20070220
  Receipt Date: 20070209
  Transmission Date: 20070707
  Serious: Yes (Hospitalization)
  Sender: FDA-Public Use
  Company Number: IT-PFIZER INC-2007011478

PATIENT
  Sex: Male

DRUGS (4)
  1. LYRICA [Suspect]
     Indication: NEURALGIA
     Route: 048
     Dates: start: 20060822, end: 20060826
  2. ZESTRIL [Concomitant]
     Route: 048
  3. DIAMICRON [Concomitant]
     Route: 048
  4. OMNIC [Concomitant]
     Route: 048

REACTIONS (3)
  - PAIN IN EXTREMITY [None]
  - PARAESTHESIA [None]
  - TACHYCARDIA [None]
